FAERS Safety Report 13522234 (Version 1)
Quarter: 2017Q2

REPORT INFORMATION
  Report Type: Spontaneous
  Country: US (occurrence: US)
  Receive Date: 20170508
  Receipt Date: 20170508
  Transmission Date: 20170830
  Serious: No
  Sender: FDA-Public Use
  Company Number: US-APOTEX-2017AP006635

PATIENT
  Age: 39 Year

DRUGS (7)
  1. DIVALPROEX SODIUM DELAYED-RELEASE TABLETS USP [Suspect]
     Active Substance: DIVALPROEX SODIUM
     Indication: BIPOLAR DISORDER
     Route: 065
  2. TOPIRAMATE. [Suspect]
     Active Substance: TOPIRAMATE
     Indication: BIPOLAR DISORDER
  3. CHLORDIAZEPOXIDE. [Suspect]
     Active Substance: CHLORDIAZEPOXIDE
     Indication: BIPOLAR DISORDER
  4. CLONAZEPAM TABLETS USP [Suspect]
     Active Substance: CLONAZEPAM
     Indication: BIPOLAR DISORDER
     Route: 065
  5. LITHIUM. [Suspect]
     Active Substance: LITHIUM
     Indication: BIPOLAR DISORDER
     Route: 065
  6. PAROXETINE. [Suspect]
     Active Substance: PAROXETINE
     Indication: BIPOLAR DISORDER
     Route: 065
  7. BUPROPION HYDROCHLORIDE. [Suspect]
     Active Substance: BUPROPION HYDROCHLORIDE
     Indication: BIPOLAR DISORDER
     Route: 065

REACTIONS (6)
  - Irritability [Unknown]
  - Insomnia [Unknown]
  - Psychotic disorder [Unknown]
  - Drug resistance [Unknown]
  - Mood swings [Unknown]
  - Depression [Unknown]
